FAERS Safety Report 21157817 (Version 1)
Quarter: 2022Q3

REPORT INFORMATION
  Report Type: Spontaneous
  Country: ES (occurrence: ES)
  Receive Date: 20220801
  Receipt Date: 20220801
  Transmission Date: 20221026
  Serious: Yes (Other)
  Sender: FDA-Public Use
  Company Number: ES-ROCHE-3033727

PATIENT
  Age: 64 Year
  Sex: Female

DRUGS (1)
  1. RITUXIMAB [Suspect]
     Active Substance: RITUXIMAB
     Indication: Primary progressive multiple sclerosis
     Dosage: 600 MG, WEEKLY
     Route: 042
     Dates: start: 2018, end: 2020

REACTIONS (14)
  - Ileus paralytic [Unknown]
  - Axillary pain [Unknown]
  - Eye pain [Unknown]
  - Bowel movement irregularity [Unknown]
  - Palpitations [Unknown]
  - Burning sensation [Unknown]
  - Stomatitis [Unknown]
  - Chills [Unknown]
  - Genital ulceration [Unknown]
  - Headache [Unknown]
  - Drug hypersensitivity [Unknown]
  - Drug intolerance [Unknown]
  - Off label use [Unknown]
  - Skin ulcer [Unknown]
